FAERS Safety Report 9653385 (Version 1)
Quarter: 2013Q4

REPORT INFORMATION
  Report Type: Spontaneous
  Country: US (occurrence: None)
  Receive Date: 20131028
  Receipt Date: 20131028
  Transmission Date: 20140711
  Serious: Yes (Other)
  Sender: FDA-Public Use
  Company Number: None

PATIENT
  Age: 64 Year
  Sex: Female
  Weight: 95.26 kg

DRUGS (1)
  1. LEVOFLOXACIN [Suspect]
     Indication: PNEUMONIA
     Dosage: 1 PILLS ONCE DAILY
     Route: 048
     Dates: start: 20130823, end: 20130823

REACTIONS (2)
  - Arthralgia [None]
  - Tendon pain [None]
